FAERS Safety Report 8463563-5 (Version None)
Quarter: 2012Q2

REPORT INFORMATION
  Report Type: 
  Country: None (occurrence: None)
  Receive Date: 20120625
  Receipt Date: 20120619
  Transmission Date: 20120825
  Serious: Yes (Other)
  Sender: FDA-Public Use
  Company Number: US-PFIZER INC-2012082145

PATIENT
  Sex: Female
  Weight: 90.703 kg

DRUGS (5)
  1. LYRICA [Suspect]
     Dosage: UNK
  2. HYDROCODONE [Concomitant]
     Dosage: UNK
  3. LEVOTHYROXINE [Concomitant]
     Indication: HYPOTHYROIDISM
     Dosage: UNK
  4. LYRICA [Suspect]
     Indication: FIBROMYALGIA
     Dosage: 100 MG, 3X/DAY
     Route: 048
     Dates: start: 20060101, end: 20120329
  5. ULTRAM [Concomitant]
     Dosage: UNK

REACTIONS (4)
  - MALAISE [None]
  - DRUG DEPENDENCE [None]
  - NAUSEA [None]
  - PAIN [None]
